FAERS Safety Report 8246526-4 (Version None)
Quarter: 2012Q1

REPORT INFORMATION
  Report Type: 
  Country: None (occurrence: None)
  Receive Date: 20120330
  Receipt Date: 20120319
  Transmission Date: 20120608
  Serious: Yes (Hospitalization, Other)
  Sender: FDA-Public Use
  Company Number: FI-BRISTOL-MYERS SQUIBB COMPANY-16297046

PATIENT
  Age: 56 Year
  Sex: Female

DRUGS (4)
  1. METHOTREXATE [Suspect]
     Indication: RHEUMATOID ARTHRITIS
     Dosage: TABLET,25MG IN LATE 2011,MONOTHERAPY IN EARLY DEC INITIALLY START WITH 10MG/WK INCREASE TO 20MG
     Route: 048
     Dates: start: 20111004
  2. ORENCIA [Suspect]
     Indication: RHEUMATOID ARTHRITIS
     Dosage: LAST INFUSION:19OCT11.
     Route: 042
     Dates: start: 20110523, end: 20111019
  3. FOLIC ACID [Concomitant]
  4. SULFASALAZINE [Concomitant]
     Dosage: 2 TABS, SALAZOPYRIN EN

REACTIONS (5)
  - MALIGNANT LYMPHOID NEOPLASM [None]
  - CONDITION AGGRAVATED [None]
  - PLEURAL EFFUSION [None]
  - PNEUMONIA [None]
  - ATELECTASIS [None]
